FAERS Safety Report 8404154-1 (Version None)
Quarter: 2012Q2

REPORT INFORMATION
  Report Type: 
  Country: None (occurrence: None)
  Receive Date: 20120601
  Receipt Date: 20120530
  Transmission Date: 20120825
  Serious: Yes (Death)
  Sender: FDA-Public Use
  Company Number: JP-PFIZER INC-2012068801

PATIENT
  Age: 9 Year
  Sex: Male
  Weight: 14.1 kg

DRUGS (10)
  1. SILDENAFIL CITRATE [Suspect]
     Dosage: 4.43 MG, 3X/DAY
     Route: 048
     Dates: start: 20100716
  2. SILDENAFIL CITRATE [Suspect]
     Indication: PULMONARY HYPERTENSION
     Dosage: 2.5 MG, 2X/DAY
     Route: 048
     Dates: start: 20081020, end: 20091028
  3. SILDENAFIL CITRATE [Suspect]
     Dosage: 2.77 MG, 3X/DAY
     Route: 048
     Dates: start: 20090424, end: 20100318
  4. SILDENAFIL CITRATE [Suspect]
     Dosage: 3.33 MG, 3X/DAY
     Route: 048
     Dates: start: 20100319, end: 20100715
  5. TRACLEER [Concomitant]
     Indication: PULMONARY HYPERTENSION
     Dosage: UNK
     Route: 048
     Dates: start: 20081001
  6. MUCODYNE [Concomitant]
     Indication: BRONCHITIS
     Dosage: UNK
     Route: 048
     Dates: start: 20081022
  7. ONON [Concomitant]
     Indication: SINUSITIS
     Dosage: UNK
     Route: 048
     Dates: start: 20081107
  8. SILDENAFIL CITRATE [Suspect]
     Dosage: 2.23 MG, 3X/DAY
     Route: 048
     Dates: start: 20090223, end: 20090423
  9. SILDENAFIL CITRATE [Suspect]
     Dosage: 1.67 MG, 3X/DAY
     Route: 048
     Dates: start: 20081029, end: 20090222
  10. EPINASTINE HYDROCHLORIDE [Concomitant]
     Indication: SINUSITIS
     Dosage: UNK
     Route: 048
     Dates: start: 20081101

REACTIONS (2)
  - PNEUMONIA [None]
  - PULMONARY HYPERTENSION [None]
